FAERS Safety Report 5855875-6 (Version None)
Quarter: 2008Q3

REPORT INFORMATION
  Report Type: 
  Country: None (occurrence: None)
  Receive Date: 20080821
  Receipt Date: 20080821
  Transmission Date: 20090109
  Serious: Yes (Other)
  Sender: FDA-Public Use
  Company Number: None

PATIENT
  Age: 69 Year
  Sex: Male
  Weight: 65.7716 kg

DRUGS (1)
  1. LOTREL [Suspect]
     Indication: HYPERTENSION
     Dosage: 1 TAB DAILY PO
     Route: 048
     Dates: start: 20080701, end: 20080729

REACTIONS (6)
  - BLOOD UREA INCREASED [None]
  - DISORIENTATION [None]
  - FLUSHING [None]
  - MIDDLE INSOMNIA [None]
  - OEDEMA [None]
  - PRURITUS [None]
